FAERS Safety Report 10974331 (Version 1)
Quarter: 2015Q2

REPORT INFORMATION
  Report Type: Spontaneous
  Country: GB (occurrence: GB)
  Receive Date: 20150401
  Receipt Date: 20150401
  Transmission Date: 20150821
  Serious: Yes (Other)
  Sender: FDA-Public Use
  Company Number: GB-JNJFOC-20150313807

PATIENT
  Age: 40 Year
  Sex: Female
  Weight: 89 kg

DRUGS (6)
  1. PREDNISOLONE. [Concomitant]
     Active Substance: PREDNISOLONE
     Dosage: 6 UNITS NOS, TAKE 6 ONCE A DAY FOR 7 DAYS, CUMULATIVE DOSE: 6UNITS NOS
     Route: 065
     Dates: start: 20150309
  2. IBUPROFEN. [Suspect]
     Active Substance: IBUPROFEN
     Indication: PRODUCT USED FOR UNKNOWN INDICATION
     Dosage: 1 UNITS NOS
     Route: 065
     Dates: start: 20150226
  3. ZAPAIN [Concomitant]
     Active Substance: ACETAMINOPHEN\CODEINE PHOSPHATE
     Dosage: TAKE 1 OR 2 4 TIMES A DAY
     Route: 065
     Dates: start: 20150226
  4. BETAMETHASONE VALERATE. [Concomitant]
     Active Substance: BETAMETHASONE VALERATE
     Dosage: APPLY TWICE DAILY
     Route: 065
     Dates: start: 20150309
  5. EPADERM [Concomitant]
     Dosage: USE AS DIRECTED
     Route: 065
     Dates: start: 20150309
  6. FEXOFENADINE [Concomitant]
     Active Substance: FEXOFENADINE\FEXOFENADINE HYDROCHLORIDE
     Dosage: 1 UNITS NOS, CUMULATIVE DOSE: 1 UNITS NOS
     Route: 065
     Dates: start: 20150309

REACTIONS (2)
  - Skin reaction [Unknown]
  - Rash [Unknown]

NARRATIVE: CASE EVENT DATE: 20150309
